FAERS Safety Report 4566343-6 (Version None)
Quarter: 2005Q1

REPORT INFORMATION
  Report Type: 
  Country: None (occurrence: None)
  Receive Date: 20050126
  Receipt Date: 20050126
  Transmission Date: 20050727
  Serious: Yes (Other)
  Sender: FDA-Public Use
  Company Number: None

PATIENT
  Age: 41 Year
  Sex: Female
  Weight: 137 kg

DRUGS (7)
  1. CEPHALEXIN [Suspect]
  2. CODEINE 30/ACETAMINOPHEN [Concomitant]
  3. MELOXICAM [Concomitant]
  4. MENTHOL 10%/METHYL SAL 15% [Concomitant]
  5. CYCLOBENZAPRINE HCL [Concomitant]
  6. HYDROCHLOROTHIAZIDE [Concomitant]
  7. ORLISTAT [Concomitant]

REACTIONS (1)
  - RASH [None]
